FAERS Safety Report 8433945-6 (Version None)
Quarter: 2012Q2

REPORT INFORMATION
  Report Type: 
  Country: None (occurrence: None)
  Receive Date: 20120613
  Receipt Date: 20120608
  Transmission Date: 20120825
  Serious: Yes (Hospitalization, Other)
  Sender: FDA-Public Use
  Company Number: VE-PFIZER INC-2012131081

PATIENT
  Age: 87 Year
  Sex: Female

DRUGS (2)
  1. ZOLOFT [Suspect]
     Indication: DEPRESSION
     Dosage: 50 MG, 1X/DAY
     Route: 048
  2. LIPITOR [Concomitant]
     Indication: HYPERCHOLESTEROLAEMIA
     Dosage: 40 MG, 1X/DAY
     Route: 048

REACTIONS (6)
  - HAEMATOCHEZIA [None]
  - FALL [None]
  - GASTRIC ULCER [None]
  - HAEMOGLOBIN DECREASED [None]
  - GASTRITIS [None]
  - SPINAL DISORDER [None]
